FAERS Safety Report 7058654-X (Version None)
Quarter: 2010Q4

REPORT INFORMATION
  Report Type: 
  Country: None (occurrence: None)
  Receive Date: 20101022
  Receipt Date: 20101018
  Transmission Date: 20110411
  Serious: Yes (Death, Hospitalization)
  Sender: FDA-Public Use
  Company Number: PHHY2010MX68951

PATIENT
  Sex: Male

DRUGS (6)
  1. GLEEVEC [Suspect]
     Indication: CHRONIC MYELOID LEUKAEMIA
     Dosage: UNK
     Route: 048
     Dates: start: 20100129
  2. VINCRISTINE [Concomitant]
     Indication: BLAST CELL CRISIS
     Dosage: 2MG/M2
  3. DEXAMETHASONE [Concomitant]
     Indication: BLAST CELL CRISIS
     Dosage: 6MG/M2
  4. METHOTREXATE [Concomitant]
     Indication: BLAST CELL CRISIS
     Dosage: 12MG
  5. HYDROCORTISONE [Concomitant]
     Indication: BLAST CELL CRISIS
     Dosage: UNK
  6. ELSPAR [Concomitant]
     Dosage: 100 000U/M2

REACTIONS (2)
  - BLAST CRISIS IN MYELOGENOUS LEUKAEMIA [None]
  - SEPSIS [None]
